FAERS Safety Report 5803728-1 (Version None)
Quarter: 2008Q3

REPORT INFORMATION
  Report Type: 
  Country: None (occurrence: None)
  Receive Date: 20080708
  Receipt Date: 20071108
  Transmission Date: 20090109
  Serious: No
  Sender: FDA-Public Use
  Company Number: US-AMGEN-KDL250570

PATIENT
  Sex: Female
  Weight: 47.7 kg

DRUGS (6)
  1. KINERET [Suspect]
     Indication: DRUG USE FOR UNKNOWN INDICATION
     Route: 058
     Dates: start: 20071015, end: 20071030
  2. ALLOPURINOL [Concomitant]
     Dates: start: 20010101
  3. COLCHICINE [Concomitant]
     Dates: start: 20010101
  4. PREDNISONE TAB [Concomitant]
     Dates: start: 20060201
  5. VICODIN [Concomitant]
     Dates: start: 20060101
  6. PERCOCET [Concomitant]

REACTIONS (10)
  - DIARRHOEA [None]
  - DRUG ADMINISTERED AT INAPPROPRIATE SITE [None]
  - HEADACHE [None]
  - INJECTION SITE ERYTHEMA [None]
  - INJECTION SITE PAIN [None]
  - INJECTION SITE PRURITUS [None]
  - INJECTION SITE REACTION [None]
  - INJECTION SITE SWELLING [None]
  - PHOTOPHOBIA [None]
  - VOMITING [None]
